FAERS Safety Report 25643610 (Version 2)
Quarter: 2025Q3

REPORT INFORMATION
  Report Type: Spontaneous
  Country: US (occurrence: US)
  Receive Date: 20250805
  Receipt Date: 20250813
  Transmission Date: 20251020
  Serious: No
  Sender: AMGEN
  Company Number: US-AMGEN-USASP2025151544

PATIENT
  Age: 70 Year
  Sex: Female

DRUGS (3)
  1. REPATHA [Suspect]
     Active Substance: EVOLOCUMAB
     Indication: Product used for unknown indication
     Dosage: 140 MILLIGRAM, QWK
     Route: 065
     Dates: start: 20250531, end: 2025
  2. REPATHA [Suspect]
     Active Substance: EVOLOCUMAB
     Dosage: 140 MILLIGRAM, QWK
     Route: 065
  3. REPATHA [Suspect]
     Active Substance: EVOLOCUMAB
     Dosage: 140 MILLIGRAM, QWK
     Route: 065

REACTIONS (10)
  - Hypersensitivity [Recovered/Resolved]
  - Blood glucose increased [Unknown]
  - Vision blurred [Unknown]
  - Oropharyngeal pain [Unknown]
  - Rhinorrhoea [Unknown]
  - Dizziness [Unknown]
  - Headache [Unknown]
  - Device difficult to use [Unknown]
  - Drug dose omission by device [Unknown]
  - Off label use [Unknown]

NARRATIVE: CASE EVENT DATE: 20250101
